FAERS Safety Report 6090605-7 (Version None)
Quarter: 2009Q1

REPORT INFORMATION
  Report Type: 
  Country: None (occurrence: None)
  Receive Date: 20090224
  Receipt Date: 20090112
  Transmission Date: 20090719
  Serious: No
  Sender: FDA-Public Use
  Company Number: US-ABBOTT-09P-163-0496974-00

PATIENT
  Sex: Male

DRUGS (15)
  1. SIMCOR [Suspect]
     Indication: DRUG USE FOR UNKNOWN INDICATION
     Dosage: 500/20MG
  2. MEFORMIN [Concomitant]
     Indication: DRUG USE FOR UNKNOWN INDICATION
  3. ADVICOR [Concomitant]
     Indication: DRUG USE FOR UNKNOWN INDICATION
  4. NORVASC [Concomitant]
     Indication: DRUG USE FOR UNKNOWN INDICATION
  5. ALTACE [Concomitant]
     Indication: DRUG USE FOR UNKNOWN INDICATION
  6. GLIPIZIDE [Concomitant]
     Indication: DRUG USE FOR UNKNOWN INDICATION
  7. SYNTHROID [Concomitant]
     Indication: DRUG USE FOR UNKNOWN INDICATION
  8. CELEBREX [Concomitant]
     Indication: DRUG USE FOR UNKNOWN INDICATION
  9. COZAAR [Concomitant]
     Indication: DRUG USE FOR UNKNOWN INDICATION
  10. TOPROL-XL [Concomitant]
     Indication: DRUG USE FOR UNKNOWN INDICATION
  11. PHOSAMAX [Concomitant]
     Indication: DRUG USE FOR UNKNOWN INDICATION
  12. OSCAL [Concomitant]
     Indication: DRUG USE FOR UNKNOWN INDICATION
  13. ASPIRIN [Concomitant]
     Indication: DRUG USE FOR UNKNOWN INDICATION
  14. M.V.I. [Concomitant]
     Indication: DRUG USE FOR UNKNOWN INDICATION
  15. SLOW FE [Concomitant]
     Indication: DRUG USE FOR UNKNOWN INDICATION

REACTIONS (2)
  - FEELING HOT [None]
  - FLUSHING [None]
